FAERS Safety Report 8603510-6 (Version None)
Quarter: 2012Q3

REPORT INFORMATION
  Report Type: 
  Country: None (occurrence: None)
  Receive Date: 20120817
  Receipt Date: 20120815
  Transmission Date: 20120928
  Serious: Yes (Other)
  Sender: FDA-Public Use
  Company Number: CA-ROCHE-1102638

PATIENT
  Sex: Female
  Weight: 59.928 kg

DRUGS (17)
  1. APO-CLONAZEPAM [Concomitant]
  2. BUTRANS [Concomitant]
  3. MYFORTIC [Concomitant]
  4. FOLIC ACID [Concomitant]
  5. CARBOCAL D [Concomitant]
  6. DEMEROL [Concomitant]
  7. CALCITE [Concomitant]
  8. STATEX (CANADA) [Concomitant]
  9. SYNTHROID [Concomitant]
  10. ATACAND [Concomitant]
  11. LEUCOVORIN CALCIUM [Concomitant]
  12. CESAMET [Concomitant]
  13. ELAVIL [Concomitant]
  14. ACTEMRA [Suspect]
     Indication: RHEUMATOID ARTHRITIS
     Route: 042
     Dates: start: 20120523
  15. APO-CYCLOBENZAPRINE [Concomitant]
  16. TEVA-PANTOPRAZOLE [Concomitant]
  17. ACTONEL [Concomitant]

REACTIONS (3)
  - ABASIA [None]
  - PAIN [None]
  - MOBILITY DECREASED [None]
